FAERS Safety Report 11774833 (Version 1)
Quarter: 2015Q4

REPORT INFORMATION
  Report Type: Spontaneous
  Country: US (occurrence: US)
  Receive Date: 20151124
  Receipt Date: 20151124
  Transmission Date: 20160304
  Serious: Yes (Other)
  Sender: FDA-Public Use
  Company Number: US-TEVA-611010USA

PATIENT
  Age: 82 Year
  Sex: Female

DRUGS (1)
  1. QVAR [Suspect]
     Active Substance: BECLOMETHASONE DIPROPIONATE
     Indication: PRODUCT USED FOR UNKNOWN INDICATION
     Dosage: DOSE AND FREQUENCYNOT PROVIDED
     Route: 055

REACTIONS (2)
  - Gallbladder operation [Unknown]
  - Bile duct stent insertion [Unknown]

NARRATIVE: CASE EVENT DATE: 201507
